FAERS Safety Report 4658368-7 (Version None)
Quarter: 2005Q2

REPORT INFORMATION
  Report Type: 
  Country: None (occurrence: None)
  Receive Date: 20050509
  Receipt Date: 20050425
  Transmission Date: 20051028
  Serious: Yes (Other)
  Sender: FDA-Public Use
  Company Number: USA-2005-0019991

PATIENT
  Age: 64 Year
  Sex: Female

DRUGS (4)
  1. OXYCONTIN [Suspect]
     Indication: PAIN
     Dosage: 20 MG, AM, ORAL; 10 MG,PM
     Route: 048
  2. OXYCODONE (OXYCODONE) UNKNOWN [Suspect]
     Indication: PAIN
     Dosage: MG, ORAL
     Route: 048
     Dates: start: 20050101
  3. SENOKOT-S (SENNA) [Concomitant]
  4. MILK OF MAGNESIA TAB [Concomitant]

REACTIONS (5)
  - CONSTIPATION [None]
  - DIARRHOEA [None]
  - INADEQUATE ANALGESIA [None]
  - PAIN [None]
  - PLEURAL EFFUSION [None]
